FAERS Safety Report 15587441 (Version 1)
Quarter: 2018Q4

REPORT INFORMATION
  Report Type: Spontaneous
  Country: US (occurrence: US)
  Receive Date: 20181106
  Receipt Date: 20181106
  Transmission Date: 20190205
  Serious: Yes (Other)
  Sender: FDA-Public Use
  Company Number: None

PATIENT
  Age: 51 Year
  Sex: Male
  Weight: 133.6 kg

DRUGS (10)
  1. DOCUSATE [Concomitant]
     Active Substance: DOCUSATE
     Dates: start: 20181025, end: 20181027
  2. ERTAPENEM. [Suspect]
     Active Substance: ERTAPENEM SODIUM
     Indication: PNEUMONIA
     Route: 042
     Dates: start: 20181025, end: 20181101
  3. KEPPRA [Concomitant]
     Active Substance: LEVETIRACETAM
     Dates: start: 20181023, end: 20181026
  4. FOLIC ACID. [Concomitant]
     Active Substance: FOLIC ACID
     Dates: start: 20181023, end: 20181025
  5. THIAMINE. [Concomitant]
     Active Substance: THIAMINE
     Dates: start: 20181023
  6. VANCOMYCIN [Concomitant]
     Active Substance: VANCOMYCIN
     Dates: start: 20181024, end: 20181028
  7. HUMALOG [Concomitant]
     Active Substance: INSULIN LISPRO
     Dates: start: 20181022
  8. VITAMIN B12 [Concomitant]
     Active Substance: CYANOCOBALAMIN
     Dates: start: 20181025
  9. SENNA [Concomitant]
     Active Substance: SENNA LEAF\SENNOSIDES\SENNOSIDES A AND B
     Dates: start: 20181025, end: 20181027
  10. PANTOPRAZOLE [Concomitant]
     Active Substance: PANTOPRAZOLE
     Dates: start: 20181022, end: 20181027

REACTIONS (3)
  - Muscle twitching [None]
  - Therapy cessation [None]
  - Seizure like phenomena [None]

NARRATIVE: CASE EVENT DATE: 20181101
